FAERS Safety Report 5286864-0 (Version None)
Quarter: 2007Q1

REPORT INFORMATION
  Report Type: 
  Country: None (occurrence: None)
  Receive Date: 20070329
  Receipt Date: 20070320
  Transmission Date: 20070707
  Serious: Yes (Other)
  Sender: FDA-Public Use
  Company Number: CHNY2007CA01245

PATIENT
  Age: 70 Year
  Sex: Male

DRUGS (4)
  1. HABITROL [Suspect]
     Indication: SMOKING CESSATION THERAPY
     Dosage: 21 MG, QD; TRANSDERMAL
     Route: 062
     Dates: start: 20070310, end: 20070312
  2. ANTIHYPERTENSIVE DRUGS (NO INGREDIENTS/SUBSTANCES) [Concomitant]
  3. CHOLESTEROL -AND TRIGLYCERIDE REDUCERS (NO INGREDIENTS/SUBSTANCES) [Concomitant]
  4. ALL OTHER THERAPEUTIC PRODUCTS (NO INGREDIENTS/SUBSTANCES) [Concomitant]

REACTIONS (1)
  - DYSPNOEA [None]
